FAERS Safety Report 24258091 (Version 2)
Quarter: 2024Q4

REPORT INFORMATION
  Report Type: Spontaneous
  Country: US (occurrence: US)
  Receive Date: 20240828
  Receipt Date: 20241017
  Transmission Date: 20250115
  Serious: Yes (Other)
  Sender: PFIZER
  Company Number: US-PFIZER INC-202400243576

PATIENT
  Sex: Male

DRUGS (1)
  1. GENOTROPIN [Suspect]
     Active Substance: SOMATROPIN
     Indication: Muscle building therapy
     Dosage: UNK

REACTIONS (4)
  - Off label use [Unknown]
  - Hypopituitarism [Unknown]
  - Growth hormone deficiency [Unknown]
  - Infertility [Recovered/Resolved]
